FAERS Safety Report 5019276-5 (Version None)
Quarter: 2006Q2

REPORT INFORMATION
  Report Type: 
  Country: None (occurrence: None)
  Receive Date: 20060531
  Receipt Date: 20060523
  Transmission Date: 20061013
  Serious: Yes (Other)
  Sender: FDA-Public Use
  Company Number: 2006045026

PATIENT
  Sex: Female

DRUGS (2)
  1. ZYRTEC [Suspect]
     Indication: RHINITIS SEASONAL
     Dosage: 10 MG (10 MG, 1 IN 2), ORAL
     Route: 048
     Dates: start: 20010101
  2. CONTRACEPTIVE UNSPECIFIED (CONTRACEPTIVE UNSPECIFIED) [Concomitant]

REACTIONS (7)
  - BLOOD IMMUNOGLOBULIN E ABNORMAL [None]
  - DRUG DEPENDENCE [None]
  - DRUG WITHDRAWAL SYNDROME [None]
  - FEELING JITTERY [None]
  - MYALGIA [None]
  - NASAL OEDEMA [None]
  - PRURITUS [None]
